FAERS Safety Report 4529326-8 (Version None)
Quarter: 2004Q4

REPORT INFORMATION
  Report Type: 
  Country: None (occurrence: None)
  Receive Date: 20041215
  Receipt Date: 20041215
  Transmission Date: 20050328
  Serious: Yes (Other)
  Sender: FDA-Public Use
  Company Number: None

PATIENT
  Age: 40 Year
  Sex: Female

DRUGS (3)
  1. LEADER ALLERGY (OTC) [Suspect]
     Indication: SEASONAL ALLERGY
     Dosage: 1/DAY 3 DAYS
  2. NULYTELY [Suspect]
     Indication: BARIUM ENEMA
     Dosage: AS LABELED
  3. NULYTELY [Suspect]
     Indication: PREMEDICATION
     Dosage: AS LABELED

REACTIONS (10)
  - ABDOMINAL PAIN [None]
  - ARRHYTHMIA [None]
  - BEDRIDDEN [None]
  - BLOOD BILIRUBIN INCREASED [None]
  - BLOOD TEST ABNORMAL [None]
  - DEHYDRATION [None]
  - DYSGEUSIA [None]
  - FATIGUE [None]
  - HEART RATE DECREASED [None]
  - LIPASE INCREASED [None]
